FAERS Safety Report 7814019-1 (Version None)
Quarter: 2011Q4

REPORT INFORMATION
  Report Type: 
  Country: None (occurrence: None)
  Receive Date: 20111014
  Receipt Date: 20110128
  Transmission Date: 20120403
  Serious: Yes (Hospitalization, Other)
  Sender: FDA-Public Use
  Company Number: US-BAYER-201035155NA

PATIENT
  Age: 42 Year
  Sex: Female
  Weight: 74 kg

DRUGS (20)
  1. PAXIL [Concomitant]
  2. ALLEGRA-D 12 HOUR [Concomitant]
     Dosage: UNK UNK, BID
     Route: 048
     Dates: start: 20051001
  3. YASMIN [Suspect]
     Indication: PREMENSTRUAL SYNDROME
  4. CYMBALTA [Concomitant]
     Indication: DEPRESSION
     Dosage: 90 MG, QD
     Dates: start: 20060801
  5. SINGULAIR [Concomitant]
     Dosage: 10 MG, UNK
     Dates: start: 20050901
  6. YASMIN [Suspect]
     Indication: AFFECTIVE DISORDER
     Route: 048
     Dates: start: 20050701, end: 20051001
  7. EFFEXOR XR [Concomitant]
     Dosage: 225 MG, UNK
  8. TOPAMAX [Concomitant]
     Dosage: 50 MG, UNK
     Dates: start: 20051001
  9. TOPAMAX [Concomitant]
     Dosage: 25 MG, UNK
  10. YAZ [Suspect]
     Indication: MENSTRUATION IRREGULAR
     Dosage: UNK
     Dates: start: 20060815, end: 20061005
  11. CEFTIN [Concomitant]
  12. ATORVASTATIN [Concomitant]
     Dosage: UNK
     Dates: start: 20040101
  13. YAZ [Suspect]
     Indication: AFFECTIVE DISORDER
  14. OPIUM DERIVATIVES AND EXPECTORANTS [Concomitant]
  15. WELLBUTRIN [Concomitant]
     Dosage: UNK
     Dates: start: 20050901
  16. PROZAC [Concomitant]
  17. YAZ [Suspect]
     Indication: PREMENSTRUAL SYNDROME
  18. LEVAQUIN [Concomitant]
  19. LEXAPRO [Concomitant]
     Dosage: 15 MG, UNK
     Dates: start: 20051001
  20. EXCEDRIN (MIGRAINE) [Concomitant]
     Dosage: UNK
     Dates: start: 20051001

REACTIONS (5)
  - DEEP VEIN THROMBOSIS [None]
  - PULMONARY EMBOLISM [None]
  - CHEST PAIN [None]
  - PULMONARY FIBROSIS [None]
  - PULMONARY INFARCTION [None]
